FAERS Safety Report 18196756 (Version 2)
Quarter: 2021Q2

REPORT INFORMATION
  Report Type: Spontaneous
  Country: US (occurrence: US)
  Receive Date: 20200826
  Receipt Date: 20210410
  Transmission Date: 20210717
  Serious: Yes (Other)
  Sender: FDA-Public Use
  Company Number: US-LUPIN PHARMACEUTICALS INC.-2020-05129

PATIENT
  Age: 66 Year
  Sex: Female

DRUGS (10)
  1. LORAZEPAM. [Suspect]
     Active Substance: LORAZEPAM
     Indication: BIPOLAR II DISORDER
     Dosage: 3 MILLIGRAM, QD
     Route: 048
  2. MEMANTINE. [Suspect]
     Active Substance: MEMANTINE
     Indication: BIPOLAR I DISORDER
     Dosage: 5 MILLIGRAM, QD
     Route: 065
  3. HALOPERIDOL. [Concomitant]
     Active Substance: HALOPERIDOL
     Indication: BIPOLAR II DISORDER
  4. HALOPERIDOL. [Concomitant]
     Active Substance: HALOPERIDOL
     Indication: SEDATION
     Dosage: UNK
     Route: 051
  5. MEMANTINE. [Suspect]
     Active Substance: MEMANTINE
     Dosage: 10 MILLIGRAM, BID
     Route: 065
  6. LURASIDONE [Concomitant]
     Active Substance: LURASIDONE
     Dosage: 60 MILLIGRAM, QD (DOWN?TITRATED TO 40MG DUE TO WORSENING CATATONIC SYMPTOMS)
     Route: 065
  7. LORAZEPAM. [Suspect]
     Active Substance: LORAZEPAM
     Indication: SEDATION
     Dosage: GIVEN AT INITIAL PRESENTATION
     Route: 051
  8. LORAZEPAM. [Suspect]
     Active Substance: LORAZEPAM
     Indication: BIPOLAR I DISORDER
     Dosage: 6 MILLIGRAM, QD
     Route: 048
  9. LURASIDONE [Concomitant]
     Active Substance: LURASIDONE
     Indication: BIPOLAR I DISORDER
     Dosage: 20 MILLIGRAM, QD (INITIAL DOSE UNKNOWN; ESCALATED TO 40MG DURING THE FIRST WEEK OF RE?ADMISSION)
     Route: 065
  10. LURASIDONE [Concomitant]
     Active Substance: LURASIDONE
     Dosage: 40 MILLIGRAM, QD
     Route: 065

REACTIONS (2)
  - Off label use [Unknown]
  - Sedation complication [Unknown]
